FAERS Safety Report 5624730-9 (Version None)
Quarter: 2008Q1

REPORT INFORMATION
  Report Type: 
  Country: None (occurrence: None)
  Receive Date: 20080213
  Receipt Date: 20080205
  Transmission Date: 20080703
  Serious: Yes (Other)
  Sender: FDA-Public Use
  Company Number: ES-BRISTOL-MYERS SQUIBB COMPANY-14073712

PATIENT
  Age: 52 Year
  Sex: Male

DRUGS (2)
  1. ERBITUX [Suspect]
     Route: 042
     Dates: start: 20071010, end: 20071010
  2. ELOXATIN [Suspect]
     Route: 042
     Dates: start: 20071010, end: 20071010

REACTIONS (5)
  - DIZZINESS [None]
  - HYPERHIDROSIS [None]
  - HYPOTENSION [None]
  - INFUSION RELATED REACTION [None]
  - MYOCLONUS [None]
